FAERS Safety Report 21535675 (Version 1)
Quarter: 2022Q4

REPORT INFORMATION
  Report Type: Spontaneous
  Country: US (occurrence: US)
  Receive Date: 20221101
  Receipt Date: 20221101
  Transmission Date: 20230112
  Serious: No
  Sender: FDA-Public Use
  Company Number: US-PFIZER INC-202201262482

PATIENT
  Age: 59 Year
  Sex: Female
  Weight: 89.81 kg

DRUGS (2)
  1. PAXLOVID [Suspect]
     Active Substance: NIRMATRELVIR\RITONAVIR
     Indication: COVID-19 treatment
     Dosage: [PF-07321332 300 MG]/[RITONAVIR 100 MG] 2X/DAY
     Route: 048
     Dates: start: 20220912, end: 20220913
  2. LEVOFLOXACIN [Concomitant]
     Active Substance: LEVOFLOXACIN
     Indication: Ear infection
     Dosage: 500 MG (ONLY TOOK ONE PILL)
     Dates: start: 202209

REACTIONS (5)
  - Rash [Recovered/Resolved]
  - Pruritus [Recovered/Resolved]
  - Hypoaesthesia oral [Unknown]
  - Sleep disorder due to general medical condition, insomnia type [Unknown]
  - Scar [Unknown]

NARRATIVE: CASE EVENT DATE: 20220901
